FAERS Safety Report 12834270 (Version 1)
Quarter: 2016Q4

REPORT INFORMATION
  Report Type: Not Available
  Country: None (occurrence: US)
  Receive Date: 20161010
  Receipt Date: 20161010
  Transmission Date: 20170207
  Serious: Yes (Other)
  Sender: FDA-Public Use
  Company Number: US-AKORN-40476

PATIENT
  Sex: Female
  Weight: 86 kg

DRUGS (1)
  1. FUL-GLO [Suspect]
     Active Substance: FLUORESCEIN SODIUM

REACTIONS (2)
  - Atrial fibrillation [Unknown]
  - Drug hypersensitivity [Unknown]
